FAERS Safety Report 8484554 (Version 3)
Quarter: 2012Q4

REPORT INFORMATION
  Report Type: Report from Study
  Country: JP (occurrence: JP)
  Receive Date: 20120330
  Receipt Date: 20120905
  Transmission Date: 20130627
  Serious: Yes (Death, Hospitalization)
  Sender: FDA-Public Use
  Company Number: JP-EISAI INC-E7389-02233-CLI-JP

PATIENT
  Age: 50 Year
  Sex: Female
  Weight: 49 kg

DRUGS (27)
  1. HALAVEN [Suspect]
     Indication: BREAST CANCER RECURRENT
     Route: 041
     Dates: start: 20111202, end: 20120203
  2. HALAVEN [Suspect]
     Indication: METASTASES TO LIVER
     Route: 041
     Dates: start: 20111118, end: 20111118
  3. HALAVEN [Suspect]
     Indication: METASTASES TO BONE
  4. HALAVEN [Suspect]
     Indication: METASTASES TO BRAIN
  5. NEXIUM [Concomitant]
     Indication: PROPHYLAXIS
     Route: 048
  6. PRIMPERAN [Concomitant]
     Route: 048
  7. KYTRIL [Concomitant]
     Indication: PROPHYLAXIS
     Route: 041
  8. KYTRIL [Concomitant]
     Indication: PROPHYLAXIS
     Route: 048
  9. CELECOX [Concomitant]
     Route: 048
  10. PYDOXAL [Concomitant]
     Route: 048
  11. GOSHAJINKIGAN [Concomitant]
     Route: 048
  12. OXYCONTIN [Concomitant]
     Route: 048
  13. SENNOSIDE [Concomitant]
     Indication: PROPHYLAXIS
     Route: 048
  14. CYMBALTA [Concomitant]
     Route: 048
  15. EMEND [Concomitant]
     Indication: PROPHYLAXIS
     Route: 048
  16. PREGABALIN [Concomitant]
     Route: 048
  17. RINDERON [Concomitant]
     Route: 048
  18. NAUZELIN [Concomitant]
     Route: 065
  19. OPSO [Concomitant]
     Route: 048
  20. ELNEOPA NO 2 [Concomitant]
     Indication: NUTRITIONAL SUPPLEMENT
     Route: 041
  21. ALOXI [Concomitant]
     Indication: PROPHYLAXIS
     Route: 041
  22. GASTER [Concomitant]
     Route: 041
  23. MORPHINE HYDROCHLORIDE [Concomitant]
     Route: 041
  24. CEFPIROME SULFATE [Concomitant]
     Route: 041
  25. ROPION [Concomitant]
     Route: 041
  26. FENTANYL [Concomitant]
     Route: 041
  27. DUROTEP [Concomitant]
     Route: 065

REACTIONS (10)
  - Tumour lysis syndrome [Not Recovered/Not Resolved]
  - Malignant neoplasm progression [Fatal]
  - Leukopenia [None]
  - Breast cancer metastatic [None]
  - Aphagia [None]
  - Neutropenia [None]
  - Depressed level of consciousness [None]
  - Pneumonia [None]
  - Disseminated intravascular coagulation [None]
  - Jaundice [None]
